FAERS Safety Report 10099897 (Version 1)
Quarter: 2014Q2

REPORT INFORMATION
  Report Type: Spontaneous
  Country: GB (occurrence: GB)
  Receive Date: 20140423
  Receipt Date: 20140423
  Transmission Date: 20141212
  Serious: Yes (Life-Threatening)
  Sender: FDA-Public Use
  Company Number: GB-WATSON-2014-07846

PATIENT
  Age: 84 Year
  Sex: Female
  Weight: 83 kg

DRUGS (3)
  1. ATRACURIUM (UNKNOWN) [Suspect]
     Indication: ENDOTRACHEAL INTUBATION
     Dosage: 25 MG, UNKNOWN
     Route: 042
     Dates: start: 20140326
  2. FLUCLOXACILLIN (UNKNOWN) [Suspect]
     Indication: ANTIBIOTIC PROPHYLAXIS
     Dosage: 2 G, UNKNOWN
     Route: 042
     Dates: start: 20140326
  3. GENTAMICIN [Concomitant]
     Indication: PRODUCT USED FOR UNKNOWN INDICATION
     Dosage: UNK
     Route: 065

REACTIONS (3)
  - Hypotension [Recovered/Resolved]
  - Bronchospasm [Recovered/Resolved]
  - Oxygen saturation decreased [Recovered/Resolved]
